FAERS Safety Report 10078747 (Version 1)
Quarter: 2014Q2

REPORT INFORMATION
  Report Type: Spontaneous
  Country: US (occurrence: None)
  Receive Date: 20140414
  Receipt Date: 20140414
  Transmission Date: 20141212
  Serious: Yes (Other)
  Sender: FDA-Public Use
  Company Number: None

PATIENT
  Age: 69 Year
  Sex: Male
  Weight: 123.38 kg

DRUGS (7)
  1. XTANDI 40MG [Suspect]
     Indication: PROSTATE CANCER
     Route: 048
     Dates: start: 20130802, end: 20140404
  2. DEXAMETHA [Concomitant]
  3. ASA [Concomitant]
  4. OMEPRAZOLE [Concomitant]
  5. PREDNISONE [Concomitant]
  6. MVI [Concomitant]
  7. CA [Concomitant]

REACTIONS (1)
  - Treatment failure [None]
